FAERS Safety Report 21232162 (Version 1)
Quarter: 2022Q3

REPORT INFORMATION
  Report Type: Spontaneous
  Country: US (occurrence: None)
  Receive Date: 20220818
  Receipt Date: 20220818
  Transmission Date: 20221026
  Serious: Yes (Other)
  Sender: FDA-Public Use
  Company Number: None

PATIENT
  Age: 77 Year
  Sex: Male
  Weight: 92 kg

DRUGS (17)
  1. BEBTELOVIMAB [Suspect]
     Active Substance: BEBTELOVIMAB
     Indication: COVID-19
     Dosage: OTHER FREQUENCY : ONCE;?
     Route: 040
     Dates: start: 20220806, end: 20220806
  2. SIMVASTATIN [Concomitant]
     Active Substance: SIMVASTATIN
  3. OMEPRAZOLE [Concomitant]
     Active Substance: OMEPRAZOLE
  4. MAGNESIUM OXIDE [Concomitant]
     Active Substance: MAGNESIUM OXIDE
  5. GABAPENTIN [Concomitant]
     Active Substance: GABAPENTIN
  6. SITAGLIPTIN [Concomitant]
     Active Substance: SITAGLIPTIN
  7. LOSARTAN [Concomitant]
     Active Substance: LOSARTAN
  8. ALBUTEROL [Concomitant]
     Active Substance: ALBUTEROL
  9. ZOLPIDEM [Concomitant]
     Active Substance: ZOLPIDEM TARTRATE
  10. ASPIRIN [Concomitant]
     Active Substance: ASPIRIN
  11. FINASTERIDE [Concomitant]
     Active Substance: FINASTERIDE
  12. PRAMIPEXOLE [Concomitant]
     Active Substance: PRAMIPEXOLE
  13. CHOLECALCIFEROL [Concomitant]
     Active Substance: CHOLECALCIFEROL
  14. TRAMADOL [Concomitant]
     Active Substance: TRAMADOL
  15. METFORMIN [Concomitant]
     Active Substance: METFORMIN HYDROCHLORIDE
  16. HYDROCHLOROTHIAZIDE [Concomitant]
     Active Substance: HYDROCHLOROTHIAZIDE
  17. LEVOTHYROXINE [Concomitant]
     Active Substance: LEVOTHYROXINE

REACTIONS (6)
  - Chills [None]
  - Nasopharyngitis [None]
  - Tachypnoea [None]
  - Tachycardia [None]
  - Oxygen saturation decreased [None]
  - Blood pressure systolic decreased [None]

NARRATIVE: CASE EVENT DATE: 20220806
